FAERS Safety Report 12945984 (Version 2)
Quarter: 2017Q1

REPORT INFORMATION
  Report Type: Report from Study
  Country: US (occurrence: US)
  Receive Date: 20161115
  Receipt Date: 20170103
  Transmission Date: 20170428
  Serious: Yes (Hospitalization, Disabling, Other)
  Sender: FDA-Public Use
  Company Number: US-ACTELION-A-US2016-145487

PATIENT
  Age: 50 Year
  Sex: Female

DRUGS (1)
  1. TRACLEER [Suspect]
     Active Substance: BOSENTAN
     Indication: PULMONARY ARTERIAL HYPERTENSION
     Dosage: 125 MG, BID
     Route: 048
     Dates: start: 20090319

REACTIONS (9)
  - Lower limb fracture [Not Recovered/Not Resolved]
  - Anaemia [Unknown]
  - Vomiting [Not Recovered/Not Resolved]
  - Fall [Not Recovered/Not Resolved]
  - Transfusion [Unknown]
  - Headache [Not Recovered/Not Resolved]
  - Dehydration [Unknown]
  - Post-traumatic headache [Unknown]
  - Nausea [Not Recovered/Not Resolved]

NARRATIVE: CASE EVENT DATE: 2016
